FAERS Safety Report 4554583-1 (Version None)
Quarter: 2005Q1

REPORT INFORMATION
  Report Type: 
  Country: None (occurrence: None)
  Receive Date: 20041227
  Receipt Date: 20040810
  Transmission Date: 20050727
  Serious: Yes (Hospitalization)
  Sender: FDA-Public Use
  Company Number: US086899

PATIENT
  Age: 79 Year
  Sex: Female

DRUGS (6)
  1. ARANESP [Suspect]
     Indication: RENAL FAILURE CHRONIC
     Dosage: 30 MCG, 1 IN 3 WEEKS, SC
     Route: 058
     Dates: start: 20030530
  2. DIPYRIDAMOLE [Concomitant]
  3. ACETYLSALICYLIC ACID SRT [Concomitant]
  4. CYANOCOBALAMIN [Concomitant]
  5. MONTELUKAST [Concomitant]
  6. LEVOXYL [Concomitant]

REACTIONS (9)
  - BLINDNESS [None]
  - CONVULSION [None]
  - DIZZINESS [None]
  - FEELING ABNORMAL [None]
  - FEELING HOT [None]
  - INCONTINENCE [None]
  - LACRIMATION INCREASED [None]
  - NASAL CONGESTION [None]
  - TRANSIENT ISCHAEMIC ATTACK [None]
